FAERS Safety Report 23969305 (Version 1)
Quarter: 2024Q2

REPORT INFORMATION
  Report Type: Spontaneous
  Country: US (occurrence: US)
  Receive Date: 20240612
  Receipt Date: 20240612
  Transmission Date: 20240715
  Serious: No
  Sender: FDA-Public Use
  Company Number: US-Blueprint Medicines Corporation-3851

PATIENT
  Age: 23 Year
  Sex: Female

DRUGS (1)
  1. AYVAKIT [Suspect]
     Active Substance: AVAPRITINIB
     Indication: Systemic mastocytosis
     Route: 065
     Dates: start: 20230628

REACTIONS (5)
  - Headache [Unknown]
  - Neck pain [Unknown]
  - Peripheral swelling [Unknown]
  - Sunburn [Unknown]
  - Tryptase increased [Unknown]

NARRATIVE: CASE EVENT DATE: 20240401
